FAERS Safety Report 9799428 (Version 1)
Quarter: 2014Q1

REPORT INFORMATION
  Report Type: Spontaneous
  Country: US (occurrence: None)
  Receive Date: 20140103
  Receipt Date: 20140103
  Transmission Date: 20141002
  Serious: Yes (Other)
  Sender: FDA-Public Use
  Company Number: None

PATIENT
  Age: 49 Year
  Sex: Female
  Weight: 70 kg

DRUGS (1)
  1. CARBOPLATIN 600MG/60ML HOSPIRA [Suspect]
     Indication: OVARIAN CANCER
     Dosage: 570 MG  Q28D  IV
     Route: 042
     Dates: start: 20131125

REACTIONS (4)
  - Asthenia [None]
  - Gait disturbance [None]
  - Flushing [None]
  - Abdominal pain [None]
